FAERS Safety Report 22841875 (Version 2)
Quarter: 2024Q2

REPORT INFORMATION
  Report Type: Spontaneous
  Country: US (occurrence: US)
  Receive Date: 20230821
  Receipt Date: 20240429
  Transmission Date: 20240716
  Serious: Yes (Hospitalization)
  Sender: FDA-Public Use
  Company Number: US-SA-SAC20230816000427

PATIENT
  Age: 54 Year
  Sex: Male

DRUGS (3)
  1. REZUROCK [Suspect]
     Active Substance: BELUMOSUDIL
     Indication: Peripheral T-cell lymphoma unspecified
     Dosage: 200 MG, QD
     Route: 048
     Dates: start: 20230527
  2. REZUROCK [Suspect]
     Active Substance: BELUMOSUDIL
     Indication: Autoimmune haemolytic anaemia
  3. REZUROCK [Suspect]
     Active Substance: BELUMOSUDIL
     Indication: Angioimmunoblastic T-cell lymphoma

REACTIONS (2)
  - Hospitalisation [Unknown]
  - Product use in unapproved indication [Unknown]

NARRATIVE: CASE EVENT DATE: 20230527
